FAERS Safety Report 14775460 (Version 1)
Quarter: 2018Q2

REPORT INFORMATION
  Report Type: Report from Study
  Country: CN (occurrence: CN)
  Receive Date: 20180418
  Receipt Date: 20180418
  Transmission Date: 20180711
  Serious: Yes (Hospitalization)
  Sender: FDA-Public Use
  Company Number: CN-MYLANLABS-2018M1024009

PATIENT
  Age: 60 Year
  Sex: Male

DRUGS (2)
  1. METHOTREXATE. [Suspect]
     Active Substance: METHOTREXATE
     Indication: RHEUMATOID ARTHRITIS
     Route: 065
  2. METHOTREXATE. [Suspect]
     Active Substance: METHOTREXATE
     Dosage: TAKING METHOTREXATE DAILY FOR 24 DAYS INSTEAD OF WEEKLY DOSE
     Route: 065

REACTIONS (2)
  - Bone marrow failure [Recovered/Resolved]
  - Inappropriate schedule of drug administration [Recovered/Resolved]
